FAERS Safety Report 21667784 (Version 23)
Quarter: 2024Q3

REPORT INFORMATION
  Report Type: Spontaneous
  Country: US (occurrence: US)
  Receive Date: 20221201
  Receipt Date: 20240717
  Transmission Date: 20241017
  Serious: Yes (Hospitalization)
  Sender: PFIZER
  Company Number: US-PFIZER INC-PV202200113940

PATIENT
  Age: 75 Year
  Sex: Female
  Weight: 78.02 kg

DRUGS (5)
  1. IBRANCE [Suspect]
     Active Substance: PALBOCICLIB
     Indication: Breast cancer metastatic
     Dosage: EVERY DAY FOR 21 DAYS AND THEN OFF A WEEK
     Route: 048
     Dates: start: 20221107
  2. IBRANCE [Suspect]
     Active Substance: PALBOCICLIB
     Dosage: TAKE 1 (ONE) TABLET (125 MG TOTAL) DAILY FOR 21 DAYS, FOLLOWED BY 7 DAYS OFF
     Route: 048
  3. IBRANCE [Suspect]
     Active Substance: PALBOCICLIB
     Dosage: DAILY FOR 84 DAYS THEN 7 DAYS OFF IS A BIT MUCH SHOULD BE ON 21 DAYS OFF 7 DAYS
     Route: 048
  4. FEMARA [Concomitant]
     Active Substance: LETROZOLE
     Indication: Breast cancer
     Dosage: 25 MG, DAILY
     Route: 048
     Dates: start: 20221107
  5. FASLODEX [Concomitant]
     Active Substance: FULVESTRANT
     Dosage: UNK

REACTIONS (31)
  - COVID-19 [Unknown]
  - Off label use [Unknown]
  - Product use issue [Unknown]
  - Epistaxis [Recovered/Resolved]
  - Chills [Recovered/Resolved]
  - Nausea [Recovered/Resolved]
  - Abdominal discomfort [Unknown]
  - Gait disturbance [Unknown]
  - Pain [Unknown]
  - Blood test abnormal [Unknown]
  - Rhinorrhoea [Not Recovered/Not Resolved]
  - Vision blurred [Unknown]
  - Lacrimation increased [Not Recovered/Not Resolved]
  - Photopsia [Unknown]
  - Hypersensitivity [Unknown]
  - Blood potassium decreased [Unknown]
  - Weight increased [Unknown]
  - Erythema of eyelid [Unknown]
  - Malaise [Unknown]
  - Hot flush [Not Recovered/Not Resolved]
  - Malaise [Unknown]
  - Nasopharyngitis [Unknown]
  - White blood cell count abnormal [Unknown]
  - Dry skin [Unknown]
  - Pruritus [Unknown]
  - White blood cell count decreased [Unknown]
  - Fall [Unknown]
  - Headache [Unknown]
  - Alopecia [Recovering/Resolving]
  - Body height decreased [Unknown]
  - Eye swelling [Unknown]

NARRATIVE: CASE EVENT DATE: 20220101
